FAERS Safety Report 8715193 (Version 3)
Quarter: 2012Q4

REPORT INFORMATION
  Report Type: 
  Country: JP (occurrence: JP)
  Receive Date: 20120809
  Receipt Date: 20120917
  Transmission Date: 20130627
  Serious: Yes (Other)
  Sender: FDA-Public Use
  Company Number: JP-PFIZER INC-2012193661

PATIENT
  Age: 82 Year
  Sex: Male
  Weight: 53 kg

DRUGS (10)
  1. NORVASC OD [Suspect]
     Indication: HYPERTENSION
     Dosage: 5 mg, day
     Route: 048
     Dates: start: 20101112, end: 20120704
  2. DIOVAN [Suspect]
     Indication: HYPERTENSION
     Dosage: 40 mg daily
     Route: 048
     Dates: start: 20120411, end: 20120424
  3. DIOVAN [Suspect]
     Dosage: 20 mg, 1x/day
     Route: 048
     Dates: start: 20120425, end: 20120619
  4. DIOVAN [Suspect]
     Dosage: 40 mg, 1x/day
     Route: 048
     Dates: start: 20120620, end: 20120717
  5. PARIET [Suspect]
     Indication: GASTROOESOPHAGEAL REFLUX DISEASE
     Dosage: 10 mg daily
     Route: 048
     Dates: start: 20111222, end: 20120717
  6. PREDONINE [Concomitant]
     Indication: RADIATION PNEUMONITIS
     Dosage: 5 mg x 6 tablets/day
     Dates: start: 20120510
  7. PREDONINE [Concomitant]
     Dosage: 5 mg x 5 tablets/day
  8. PREDONINE [Concomitant]
     Dosage: 5 mg x 4 tablets/day
  9. PREDONINE [Concomitant]
     Dosage: 5 mg x 3 tablets/day
  10. PREDONINE [Concomitant]
     Dosage: 5 mg x 2 tablets/day

REACTIONS (3)
  - Renal impairment [Recovered/Resolved]
  - Blood creatine phosphokinase increased [Recovered/Resolved]
  - Hepatic function abnormal [Recovering/Resolving]
